FAERS Safety Report 17131627 (Version 1)
Quarter: 2019Q4

REPORT INFORMATION
  Report Type: Spontaneous
  Country: US (occurrence: US)
  Receive Date: 20191209
  Receipt Date: 20191209
  Transmission Date: 20200122
  Serious: No
  Sender: FDA-Public Use
  Company Number: US-UCBSA-2016048418

PATIENT
  Age: 42 Year
  Sex: Male

DRUGS (7)
  1. ATAZANAVIR. [Concomitant]
     Active Substance: ATAZANAVIR
     Indication: ACQUIRED IMMUNODEFICIENCY SYNDROME
     Dosage: UNKNOWN DOSE
  2. MARAVIROC [Concomitant]
     Active Substance: MARAVIROC
     Indication: ACQUIRED IMMUNODEFICIENCY SYNDROME
     Dosage: UNKNOWN DOSE
  3. RITONAVIR. [Concomitant]
     Active Substance: RITONAVIR
     Indication: ACQUIRED IMMUNODEFICIENCY SYNDROME
     Dosage: UNKNOWN DOSE
  4. CALCIUM + VITAMIN D [Concomitant]
     Active Substance: CALCIUM\VITAMIN D
     Indication: PRODUCT USED FOR UNKNOWN INDICATION
     Dosage: UNKNOWN DOSE
  5. ETRAVIRINE [Concomitant]
     Active Substance: ETRAVIRINE
     Indication: ACQUIRED IMMUNODEFICIENCY SYNDROME
     Dosage: UNKNOWN DOSE
  6. LEVETIRACETAM. [Suspect]
     Active Substance: LEVETIRACETAM
     Indication: SEIZURE PROPHYLAXIS
     Dosage: UNKNOWN DOSE
  7. LEVETIRACETAM. [Suspect]
     Active Substance: LEVETIRACETAM
     Indication: OFF LABEL USE

REACTIONS (1)
  - No adverse event [Unknown]
